FAERS Safety Report 9715091 (Version 1)
Quarter: 2013Q4

REPORT INFORMATION
  Report Type: Spontaneous
  Country: US (occurrence: US)
  Receive Date: 20131126
  Receipt Date: 20131126
  Transmission Date: 20140711
  Serious: No
  Sender: FDA-Public Use
  Company Number: US-NOVEN-13US008015

PATIENT
  Sex: Female

DRUGS (4)
  1. MINIVELLE [Suspect]
     Indication: HOT FLUSH
     Dosage: 0.05 MG/DAY, TWICE WEEKLY
     Route: 062
     Dates: start: 201304, end: 201306
  2. MINIVELLE [Suspect]
     Dosage: 0.0375 MG/DAY, TWICE WEEKLY
     Route: 062
     Dates: start: 201307, end: 201308
  3. PROMETRIUM                         /00110701/ [Concomitant]
     Indication: HOT FLUSH
     Dosage: UNK
     Dates: start: 201303, end: 201308
  4. PROMETRIUM                         /00110701/ [Concomitant]
     Indication: FATIGUE

REACTIONS (2)
  - Local swelling [Recovered/Resolved]
  - Weight increased [Recovered/Resolved]
